FAERS Safety Report 7629205-3 (Version None)
Quarter: 2011Q3

REPORT INFORMATION
  Report Type: 
  Country: None (occurrence: None)
  Receive Date: 20110722
  Receipt Date: 20110711
  Transmission Date: 20111222
  Serious: Yes (Hospitalization)
  Sender: FDA-Public Use
  Company Number: PHFR2011IE01394

PATIENT
  Sex: Male

DRUGS (9)
  1. LAMOTRIGINE [Concomitant]
     Dosage: 150 MG/DAY
  2. CALCIUM D3 [Concomitant]
  3. VALPROATE SODIUM [Concomitant]
     Dosage: 1800 MG/DAY
  4. CLOZAPINE [Suspect]
     Indication: SCHIZOPHRENIA
     Dosage: 850 MG/DAY
     Route: 048
     Dates: start: 20040927
  5. CITALOPRAM HYDROBROMIDE [Concomitant]
     Dosage: 20 MG/DAY
     Route: 048
  6. NEXIUM [Concomitant]
     Dosage: 20 MG/DAY
  7. HALOPERIDOL [Concomitant]
     Dosage: 5 MG, TID
     Route: 048
  8. AMISULPRIDE [Suspect]
     Dosage: 90 MG/DAY
     Route: 048
  9. KWELLS [Concomitant]
     Dosage: 1 DF, TID

REACTIONS (1)
  - ANKLE FRACTURE [None]
